FAERS Safety Report 6301295-X (Version None)
Quarter: 2009Q3

REPORT INFORMATION
  Report Type: 
  Country: None (occurrence: None)
  Receive Date: 20090807
  Receipt Date: 20090727
  Transmission Date: 20100115
  Serious: Yes (Other)
  Sender: FDA-Public Use
  Company Number: DK-JNJFOC-20090709064

PATIENT
  Sex: Male
  Weight: 122 kg

DRUGS (5)
  1. REMICADE [Suspect]
     Route: 042
  2. REMICADE [Suspect]
     Indication: COLITIS ULCERATIVE
     Route: 042
  3. NSAID [Suspect]
     Indication: ARTHRITIS
  4. NSAID [Suspect]
     Indication: MYALGIA
  5. MAREVAN [Concomitant]
     Dosage: IN DIFFERENT DOSES
     Route: 048

REACTIONS (3)
  - ARTHRITIS [None]
  - CARDIAC DISORDER [None]
  - MYALGIA [None]
